FAERS Safety Report 7626719-7 (Version None)
Quarter: 2011Q3

REPORT INFORMATION
  Report Type: 
  Country: None (occurrence: None)
  Receive Date: 20110721
  Receipt Date: 20110525
  Transmission Date: 20111222
  Serious: No
  Sender: FDA-Public Use
  Company Number: US-MYLANLABS-2011S1005885

PATIENT
  Age: 54 Year
  Sex: Female
  Weight: 76.2 kg

DRUGS (4)
  1. TOPAMAX [Concomitant]
     Indication: MIGRAINE
  2. SYMBICORT [Concomitant]
  3. LOMOTIL [Concomitant]
  4. ONDANSETRON [Suspect]
     Indication: NAUSEA
     Route: 048
     Dates: start: 20110315, end: 20110316

REACTIONS (3)
  - NAUSEA [None]
  - DRUG INEFFECTIVE [None]
  - HEADACHE [None]
